FAERS Safety Report 8907962 (Version 2)
Quarter: 2012Q4

REPORT INFORMATION
  Report Type: 
  Country: US (occurrence: US)
  Receive Date: 20121114
  Receipt Date: 20121226
  Transmission Date: 20130627
  Serious: Yes (Other)
  Sender: FDA-Public Use
  Company Number: US-AMGEN-USASP2012071112

PATIENT
  Age: 39 Year
  Sex: Male

DRUGS (9)
  1. EPOGEN [Suspect]
     Indication: RENAL FAILURE CHRONIC
     Dosage: 15000 unit, 2 times/wk
     Route: 058
     Dates: start: 2008
  2. COZAAR [Concomitant]
     Dosage: 50 UNK, UNK
  3. HECTOROL [Concomitant]
     Dosage: 50 UNK, UNK
  4. BENTYL [Concomitant]
     Dosage: 20 UNK, UNK
  5. RENVELA [Concomitant]
     Dosage: 4000 UNK, UNK
  6. PREDNISONE [Concomitant]
     Dosage: 5 UNK, UNK
  7. TOPROL [Concomitant]
     Dosage: 200 UNK, UNK
  8. CARDURA [Concomitant]
     Dosage: 4 UNK, UNK
  9. IMODIUM [Concomitant]
     Dosage: UNK

REACTIONS (1)
  - Therapeutic response decreased [Unknown]
